FAERS Safety Report 15407206 (Version 2)
Quarter: 2019Q1

REPORT INFORMATION
  Report Type: Spontaneous
  Country: US (occurrence: US)
  Receive Date: 20180920
  Receipt Date: 20190110
  Transmission Date: 20190417
  Serious: No
  Sender: FDA-Public Use
  Company Number: US-SA-2018SA257831

PATIENT
  Age: 62 Year
  Sex: Female

DRUGS (1)
  1. DUPIXENT [Suspect]
     Active Substance: DUPILUMAB
     Indication: DERMATITIS
     Dosage: 300MG, QOW
     Route: 058
     Dates: start: 20180326

REACTIONS (10)
  - Ocular hyperaemia [Unknown]
  - Erythema [Unknown]
  - Arthropod bite [Recovered/Resolved]
  - Rash [Recovered/Resolved]
  - Visual impairment [Unknown]
  - Eyelids pruritus [Unknown]
  - Sciatica [Recovered/Resolved]
  - Hypersensitivity [Unknown]
  - Eyelid oedema [Unknown]
  - Limb discomfort [Recovered/Resolved]

NARRATIVE: CASE EVENT DATE: 2018
